FAERS Safety Report 12806249 (Version 1)
Quarter: 2016Q4

REPORT INFORMATION
  Report Type: Spontaneous
  Country: US (occurrence: US)
  Receive Date: 20161003
  Receipt Date: 20161003
  Transmission Date: 20170207
  Serious: Yes (Disabling)
  Sender: FDA-Public Use
  Company Number: None

PATIENT
  Age: 69 Year
  Sex: Male
  Weight: 94.5 kg

DRUGS (2)
  1. BZK PADS [Suspect]
     Active Substance: BENZALKONIUM CHLORIDE
     Indication: INFECTION PROPHYLAXIS
     Dosage: ?          QUANTITY:1000 TOWELLETS;?
     Route: 061
     Dates: start: 20160928, end: 20161003
  2. BZK [Suspect]
     Active Substance: BENZALKONIUM CHLORIDE

REACTIONS (1)
  - Unevaluable event [None]

NARRATIVE: CASE EVENT DATE: 20160928
